FAERS Safety Report 20342986 (Version 2)
Quarter: 2022Q1

REPORT INFORMATION
  Report Type: Spontaneous
  Country: US (occurrence: US)
  Receive Date: 20220117
  Receipt Date: 20220131
  Transmission Date: 20220424
  Serious: Yes (Hospitalization)
  Sender: FDA-Public Use
  Company Number: US-TEVA-2022-US-1997461

PATIENT
  Age: 76 Year
  Sex: Male

DRUGS (5)
  1. HYDROXYUREA [Suspect]
     Active Substance: HYDROXYUREA
     Indication: Myeloproliferative neoplasm
     Dosage: 2000 MILLIGRAM DAILY; HIGH DOSE
     Route: 065
  2. AMIODARONE [Concomitant]
     Active Substance: AMIODARONE
     Indication: Product used for unknown indication
     Dosage: 200 MILLIGRAM DAILY;
     Route: 065
  3. APIXABAN [Concomitant]
     Active Substance: APIXABAN
     Indication: Product used for unknown indication
     Dosage: 10 MILLIGRAM DAILY;
     Route: 065
  4. DIGOXIN [Concomitant]
     Active Substance: DIGOXIN
     Indication: Product used for unknown indication
     Dosage: 125 MICROGRAM DAILY;
     Route: 065
  5. METOPROLOL [Concomitant]
     Active Substance: METOPROLOL
     Indication: Product used for unknown indication
     Dosage: 25 MILLIGRAM DAILY;
     Route: 065

REACTIONS (10)
  - Thrombosis [Recovered/Resolved]
  - Tachycardia [Unknown]
  - Tachypnoea [Unknown]
  - Pleural effusion [Unknown]
  - Chest pain [Unknown]
  - Hypotension [Unknown]
  - Eschar [Unknown]
  - Wound drainage [Unknown]
  - Anaemia macrocytic [Unknown]
  - Wound complication [Unknown]
